FAERS Safety Report 9307676 (Version 1)
Quarter: 2013Q2

REPORT INFORMATION
  Report Type: Spontaneous
  Country: US (occurrence: US)
  Receive Date: 20130524
  Receipt Date: 20130524
  Transmission Date: 20140414
  Serious: No
  Sender: FDA-Public Use
  Company Number: US-BAYER-2013-063905

PATIENT
  Age: 40 Year
  Sex: Male
  Weight: 77 kg

DRUGS (20)
  1. BETASERON [Suspect]
     Dosage: .3 MG, QOD
     Route: 058
  2. MELATONIN [Concomitant]
     Dosage: 10 MG, UNK
  3. MAGNESIUM [Concomitant]
     Dosage: 300 MG, UNK
  4. FLOVENT [Concomitant]
     Dosage: 100 MCG
  5. PROVENTIL HFA [Concomitant]
  6. PROVIGIL [Concomitant]
     Dosage: 200 MG, UNK
  7. PROZAC [Concomitant]
     Dosage: 20 MG, UNK
  8. PAXIL [Concomitant]
     Dosage: 20 MG, UNK
  9. VITAMIN D3 [Concomitant]
  10. AMANTADINE [Concomitant]
     Dosage: 100 MG, UNK
  11. COPAXONE [Concomitant]
     Dosage: 20 MG/ML, UNK
  12. BACLOFEN [Concomitant]
     Dosage: 10 MG, UNK
  13. VITAMIN B12 NOS [Concomitant]
     Dosage: 500 ?G, UNK
  14. VITAMIN C [Concomitant]
     Dosage: 500 MG, UNK
  15. VITAMIN D NOS [Concomitant]
     Dosage: 50000 UNT
  16. CALCIUM +VIT D [Concomitant]
     Dosage: 500 MG, UNK
  17. IBUPROFEN [Concomitant]
     Dosage: 200 MG, UNK
  18. QUININE SULF [Concomitant]
     Dosage: 200 MG, UNK
  19. BRIMONIDINE [Concomitant]
     Dosage: 0.2 %, UNK
     Route: 047
  20. DEPAKOTE [Concomitant]
     Dosage: 250 MG, UNK

REACTIONS (1)
  - Injection site mass [Unknown]
